FAERS Safety Report 9032260 (Version 1)
Quarter: 2013Q1

REPORT INFORMATION
  Report Type: Report from Study
  Country: US (occurrence: US)
  Receive Date: 20130122
  Receipt Date: 20130122
  Transmission Date: 20140127
  Serious: No
  Sender: FDA-Public Use
  Company Number: US-VERTEX PHARMACEUTICALS INC.-AE-2012-007585

PATIENT
  Age: 55 Year
  Sex: Male
  Weight: 200 kg

DRUGS (6)
  1. VX-950 (TELAPREVIR) [Suspect]
     Indication: HEPATITIS C
     Dosage: 750 MG, TID
     Route: 048
     Dates: start: 20120401
  2. PEGASYS [Suspect]
     Indication: HEPATITIS C
     Dosage: 180 ?G, QW
     Route: 058
     Dates: start: 20120401
  3. RIBAPAK [Suspect]
     Indication: HEPATITIS C
     Dosage: 600 MG, BID
     Dates: start: 20120401
  4. DAYPRO [Concomitant]
     Dosage: 600 MG, UNK
  5. VITAMIN D [Concomitant]
     Dosage: 1000 UT, UNK
  6. PERCOCET [Concomitant]
     Dosage: 10-325 MG, UNK

REACTIONS (4)
  - Injection site pruritus [Unknown]
  - Injection site erythema [Unknown]
  - Dandruff [Recovered/Resolved]
  - Rash generalised [Recovered/Resolved]
